FAERS Safety Report 20508439 (Version 1)
Quarter: 2022Q1

REPORT INFORMATION
  Report Type: Report from Study
  Country: UA (occurrence: None)
  Receive Date: 20220223
  Receipt Date: 20220223
  Transmission Date: 20220423
  Serious: Yes (Hospitalization)
  Sender: FDA-Public Use
  Company Number: DE-ROCHE-2986546

PATIENT
  Age: 36 Year
  Sex: Male
  Weight: 69.8 kg

DRUGS (12)
  1. ATEZOLIZUMAB [Suspect]
     Active Substance: ATEZOLIZUMAB
     Indication: Metastatic neoplasm
     Dosage: DATE OF LAST DOSE PRIOR TO AE WAS 02/DEC/2021 AT 2375 MG ?DOSE LAST STUDY DRUG ADMIN PRIOR SAE  2002
     Route: 058
     Dates: start: 20211202
  2. TIRAGOLUMAB [Suspect]
     Active Substance: TIRAGOLUMAB
     Indication: Metastatic neoplasm
     Dosage: DOSE LAST STUDY DRUG ADMIN PRIOR AE  1040 MG 02-DEC-2021?DOSE LAST STUDY DRUG ADMIN PRIOR SAE 876.86
     Route: 058
     Dates: start: 20211202
  3. CELECOXIB [Concomitant]
     Active Substance: CELECOXIB
     Dates: start: 202102
  4. PANTOPRAZOLE [Concomitant]
     Active Substance: PANTOPRAZOLE
     Indication: Prophylaxis against gastrointestinal ulcer
     Dates: start: 202102
  5. NIMESULIDE [Concomitant]
     Active Substance: NIMESULIDE
     Route: 048
     Dates: start: 20211210, end: 20211210
  6. ACETAMINOPHEN [Concomitant]
     Active Substance: ACETAMINOPHEN
     Dates: start: 20211214, end: 20211217
  7. ACETAMINOPHEN [Concomitant]
     Active Substance: ACETAMINOPHEN
     Route: 048
     Dates: start: 20211214, end: 20211217
  8. DEXAMETHASONE [Concomitant]
     Active Substance: DEXAMETHASONE
     Route: 030
     Dates: start: 20211216, end: 20211217
  9. DEXAMETHASONE [Concomitant]
     Active Substance: DEXAMETHASONE
     Route: 030
     Dates: start: 20211217
  10. ELTROMBOPAG [Concomitant]
     Active Substance: ELTROMBOPAG
     Route: 048
     Dates: start: 20211216
  11. ATRACURIUM BESYLATE [Concomitant]
     Active Substance: ATRACURIUM BESYLATE
     Indication: Mechanical ventilation
     Route: 042
     Dates: start: 20211218, end: 20211218
  12. DEXKETOPROFEN [Concomitant]
     Active Substance: DEXKETOPROFEN
     Route: 042
     Dates: start: 202112, end: 202112

REACTIONS (1)
  - Limbic encephalitis [Recovered/Resolved]

NARRATIVE: CASE EVENT DATE: 20211218
